FAERS Safety Report 11874349 (Version 2)
Quarter: 2017Q4

REPORT INFORMATION
  Report Type: Spontaneous
  Country: FR (occurrence: FR)
  Receive Date: 20151229
  Receipt Date: 20171103
  Transmission Date: 20180320
  Serious: Yes (Hospitalization, Other)
  Sender: FDA-Public Use
  Company Number: FR-BRISTOL-MYERS SQUIBB COMPANY-10170173

PATIENT
  Age: 28 Year
  Sex: Female

DRUGS (6)
  1. ERCEFURYL [Concomitant]
     Active Substance: NIFUROXAZIDE
     Indication: PRODUCT USED FOR UNKNOWN INDICATION
     Dosage: 100 MG, UNK
     Route: 065
  2. INVIRASE [Suspect]
     Active Substance: SAQUINAVIR MESYLATE
     Indication: HIV INFECTION
     Dosage: UNK
     Route: 065
  3. PENTACARINAT [Concomitant]
     Active Substance: PENTAMIDINE ISETHIONATE
     Indication: PRODUCT USED FOR UNKNOWN INDICATION
     Route: 065
  4. SODIUM BORATE [Concomitant]
     Active Substance: SODIUM BORATE
     Indication: PRODUCT USED FOR UNKNOWN INDICATION
     Route: 065
  5. EPIVIR [Suspect]
     Active Substance: LAMIVUDINE
     Indication: HIV INFECTION
     Dosage: UNK
     Route: 065
  6. ZERIT [Suspect]
     Active Substance: STAVUDINE
     Indication: HIV INFECTION
     Dosage: UNK
     Route: 048

REACTIONS (10)
  - Vomiting [Unknown]
  - Urinary tract disorder [Unknown]
  - Diarrhoea [Unknown]
  - Urinary tract infection [Unknown]
  - Dysuria [Unknown]
  - Pregnancy [Recovered/Resolved]
  - Anaemia [Unknown]
  - Anogenital warts [Unknown]
  - Salivary hypersecretion [Unknown]
  - Caesarean section [Unknown]

NARRATIVE: CASE EVENT DATE: 19980907
